FAERS Safety Report 12931403 (Version 3)
Quarter: 2016Q4

REPORT INFORMATION
  Report Type: Spontaneous
  Country: GB (occurrence: GB)
  Receive Date: 20161110
  Receipt Date: 20161122
  Transmission Date: 20170207
  Serious: Yes (Death, Hospitalization, Other)
  Sender: FDA-Public Use
  Company Number: GB-BIOMARINAP-GB-2016-111722

PATIENT
  Age: 17 Year
  Sex: Female

DRUGS (1)
  1. ALDURAZYME [Suspect]
     Active Substance: LARONIDASE
     Indication: MUCOPOLYSACCHARIDOSIS I
     Dosage: UNK, QW
     Route: 041
     Dates: start: 2003, end: 20151119

REACTIONS (16)
  - Surgery [Unknown]
  - Pain [Unknown]
  - Myopathy [Unknown]
  - Paraesthesia [Unknown]
  - Fatigue [Unknown]
  - Cardiac failure [Fatal]
  - Disease progression [Unknown]
  - Mobility decreased [Unknown]
  - Dyspnoea [Unknown]
  - Blindness [Unknown]
  - Corneal opacity [Unknown]
  - Lung disorder [Unknown]
  - Amnesia [Unknown]
  - Cardiac disorder [Unknown]
  - General physical health deterioration [Unknown]
  - Cardiac valve disease [Unknown]
